FAERS Safety Report 7608964-X (Version None)
Quarter: 2011Q3

REPORT INFORMATION
  Report Type: 
  Country: None (occurrence: None)
  Receive Date: 20110714
  Receipt Date: 20110706
  Transmission Date: 20111222
  Serious: Yes (Hospitalization)
  Sender: FDA-Public Use
  Company Number: FR-GLAXOSMITHKLINE-B0725052A

PATIENT
  Sex: Female

DRUGS (8)
  1. PIASCLEDINE [Concomitant]
     Route: 065
  2. DIFRAREL [Concomitant]
     Route: 065
  3. GLYBURIDE [Concomitant]
     Route: 065
  4. IRBESARTAN + HYDROCHLOROTHIAZIDE [Concomitant]
     Route: 065
  5. ISKEDYL [Concomitant]
     Route: 065
  6. ACTOS [Concomitant]
     Route: 065
  7. TRIVASTAL [Concomitant]
     Route: 065
  8. ARIXTRA [Suspect]
     Indication: PRODUCT USED FOR UNKNOWN INDICATION
     Dosage: 2.5MG PER DAY
     Route: 058
     Dates: start: 20110225, end: 20110301

REACTIONS (3)
  - PURPURA [None]
  - LEUKOCYTOCLASTIC VASCULITIS [None]
  - CONDITION AGGRAVATED [None]
